FAERS Safety Report 14694869 (Version 5)
Quarter: 2021Q2

REPORT INFORMATION
  Report Type: Report from Study
  Country: JP (occurrence: JP)
  Receive Date: 20180329
  Receipt Date: 20210621
  Transmission Date: 20210716
  Serious: Yes (Hospitalization, Other)
  Sender: FDA-Public Use
  Company Number: JP-BIOGEN-2018BI00543912

PATIENT
  Age: 4 Month
  Sex: Male
  Weight: 4.3 kg

DRUGS (22)
  1. SPINRAZA [Suspect]
     Active Substance: NUSINERSEN
     Route: 050
     Dates: start: 20180828, end: 20180828
  2. SPINRAZA [Suspect]
     Active Substance: NUSINERSEN
     Route: 050
     Dates: start: 20190924
  3. EMLA [Concomitant]
     Active Substance: LIDOCAINE\PRILOCAINE
     Route: 050
     Dates: start: 20171214, end: 20171214
  4. LOCOID [Concomitant]
     Active Substance: HYDROCORTISONE BUTYRATE
     Indication: ECZEMA INFANTILE
     Route: 050
     Dates: start: 20171225
  5. SPINRAZA [Suspect]
     Active Substance: NUSINERSEN
     Route: 050
     Dates: start: 20171025, end: 20171025
  6. SPINRAZA [Suspect]
     Active Substance: NUSINERSEN
     Route: 050
     Dates: start: 20171214, end: 20171214
  7. RIVOTRIL [Concomitant]
     Active Substance: CLONAZEPAM
     Route: 050
  8. PHENOBAL [Concomitant]
     Active Substance: PHENOBARBITAL
     Indication: EPILEPSY
     Route: 050
     Dates: start: 20191230
  9. SPINRAZA [Suspect]
     Active Substance: NUSINERSEN
     Route: 050
     Dates: start: 20171108, end: 20171108
  10. SPINRAZA [Suspect]
     Active Substance: NUSINERSEN
     Route: 050
     Dates: start: 20180417, end: 20180417
  11. SPINRAZA [Suspect]
     Active Substance: NUSINERSEN
     Dosage: THE 10TH, 11TH AND 12TH ADMINISTRATIONS
     Route: 050
  12. EMLA [Concomitant]
     Active Substance: LIDOCAINE\PRILOCAINE
     Indication: ANAESTHESIA PROCEDURE
     Route: 050
     Dates: start: 20171011, end: 20171011
  13. EMLA [Concomitant]
     Active Substance: LIDOCAINE\PRILOCAINE
     Route: 050
     Dates: start: 20171108, end: 20171108
  14. EMLA [Concomitant]
     Active Substance: LIDOCAINE\PRILOCAINE
     Route: 050
     Dates: start: 20180417, end: 20180417
  15. EMLA [Concomitant]
     Active Substance: LIDOCAINE\PRILOCAINE
     Route: 050
     Dates: start: 20180828
  16. HEPARINOID [Concomitant]
     Active Substance: CHONDROITIN SULFATE (BOVINE)
     Indication: ECZEMA INFANTILE
     Route: 050
  17. SYNAGIS [Concomitant]
     Active Substance: PALIVIZUMAB
     Indication: PROPHYLAXIS
     Dosage: 80?100MG/DAY
     Route: 050
     Dates: start: 20171121, end: 20180214
  18. SPINRAZA [Suspect]
     Active Substance: NUSINERSEN
     Route: 050
     Dates: start: 20190129, end: 20190923
  19. RIVOTRIL [Concomitant]
     Active Substance: CLONAZEPAM
     Indication: EPILEPSY
     Route: 050
     Dates: start: 20191230
  20. PHENOBAL [Concomitant]
     Active Substance: PHENOBARBITAL
     Route: 050
  21. SPINRAZA [Suspect]
     Active Substance: NUSINERSEN
     Indication: SPINAL MUSCULAR ATROPHY
     Route: 050
     Dates: start: 20171011, end: 20171011
  22. EMLA [Concomitant]
     Active Substance: LIDOCAINE\PRILOCAINE
     Route: 050
     Dates: start: 20171025, end: 20171025

REACTIONS (10)
  - Vomiting [Unknown]
  - Infection [Unknown]
  - Blood sodium abnormal [Unknown]
  - Dehydration [Unknown]
  - Cardio-respiratory arrest [Unknown]
  - Upper respiratory tract inflammation [Recovered/Resolved]
  - Scoliosis [Unknown]
  - Hypoxic-ischaemic encephalopathy [Recovered/Resolved with Sequelae]
  - Respiratory failure [Recovered/Resolved with Sequelae]
  - Pneumonia aspiration [Unknown]

NARRATIVE: CASE EVENT DATE: 20171223
